FAERS Safety Report 4440083-6 (Version None)
Quarter: 2004Q3

REPORT INFORMATION
  Report Type: 
  Country: None (occurrence: None)
  Receive Date: 20040902
  Receipt Date: 20030929
  Transmission Date: 20050211
  Serious: Yes (Disabling)
  Sender: FDA-Public Use
  Company Number: US-MERCK-0310USA00066

PATIENT
  Age: 52 Year
  Sex: Female
  Weight: 77 kg

DRUGS (18)
  1. TYLENOL [Concomitant]
     Route: 065
     Dates: start: 20000101
  2. LORTAB [Concomitant]
     Route: 065
  3. ELAVIL [Concomitant]
     Route: 065
  4. CELEBREX [Concomitant]
     Route: 065
  5. BAYCOL [Concomitant]
     Route: 065
  6. ZYRTEC [Concomitant]
     Route: 065
  7. FLEXERIL [Concomitant]
     Route: 065
  8. CLARINEX [Concomitant]
     Route: 065
  9. NEXIUM [Concomitant]
     Route: 065
  10. ALLEGRA [Concomitant]
     Route: 065
  11. HYDROCHLOROTHIAZIDE [Concomitant]
     Route: 065
  12. PREVACID [Concomitant]
     Route: 065
  13. SKELAXIN [Concomitant]
     Route: 065
  14. ALEVE [Concomitant]
     Route: 065
  15. PROTONIX [Concomitant]
     Route: 065
  16. VIOXX [Suspect]
     Indication: PAIN
     Route: 048
     Dates: start: 20001219
  17. VIOXX [Suspect]
     Indication: FIBROMYALGIA
     Route: 048
     Dates: start: 20001219
  18. ZOCOR [Concomitant]
     Route: 065

REACTIONS (20)
  - ABDOMINAL STRANGULATED HERNIA [None]
  - BLOOD CHOLESTEROL INCREASED [None]
  - BLOOD PRESSURE INCREASED [None]
  - CONSTIPATION [None]
  - DEPRESSION [None]
  - DIABETES MELLITUS [None]
  - DIVERTICULUM [None]
  - DYSPNOEA [None]
  - EMOTIONAL DISTRESS [None]
  - FIBROMYALGIA [None]
  - GASTRIC DISORDER [None]
  - GASTRITIS EROSIVE [None]
  - GASTROOESOPHAGEAL REFLUX DISEASE [None]
  - NERVOUSNESS [None]
  - NOCTURIA [None]
  - OEDEMA PERIPHERAL [None]
  - OESOPHAGEAL DISORDER [None]
  - PARAESTHESIA [None]
  - ROTATOR CUFF SYNDROME [None]
  - WHEEZING [None]
